FAERS Safety Report 5012793-3 (Version None)
Quarter: 2006Q2

REPORT INFORMATION
  Report Type: 
  Country: None (occurrence: None)
  Receive Date: 20060530
  Receipt Date: 20060308
  Transmission Date: 20061013
  Serious: No
  Sender: FDA-Public Use
  Company Number: US-BRISTOL-MYERS SQUIBB COMPANY-13307681

PATIENT
  Sex: Female

DRUGS (1)
  1. ERBITUX [Suspect]
     Dates: start: 20060308, end: 20060308

REACTIONS (1)
  - ACCIDENTAL NEEDLE STICK [None]
